FAERS Safety Report 22014393 (Version 1)
Quarter: 2023Q1

REPORT INFORMATION
  Report Type: Spontaneous
  Country: IT (occurrence: IT)
  Receive Date: 20230221
  Receipt Date: 20230221
  Transmission Date: 20230418
  Serious: Yes (Hospitalization)
  Sender: FDA-Public Use
  Company Number: None

PATIENT
  Age: 82 Year
  Sex: Female
  Weight: 57 kg

DRUGS (10)
  1. FENTANYL [Suspect]
     Active Substance: FENTANYL
     Indication: Osteoarthritis
     Dosage: UNIT DOSE: 50 MCG , FREQUENCY TIME : 72 HOURS , DURATION : 40 DAYS
     Dates: start: 20221215, end: 20230124
  2. EDOXABAN TOSYLATE [Suspect]
     Active Substance: EDOXABAN TOSYLATE
     Indication: Atrial fibrillation
     Dosage: 60 MILLIGRAM DAILY; LIXIANA 60 MG 1 CP DAY, UNIT DOSE: 60 MG , FREQUENCY : 1 IN 24 HOURS, DURATION :
     Dates: start: 20221229, end: 20230117
  3. PREDNISONE [Concomitant]
     Active Substance: PREDNISONE
     Indication: Arthritis
     Dosage: DELTACORTENE 25 MG 1/2 CP DIE
  4. BISOPROLOL [Concomitant]
     Active Substance: BISOPROLOL
     Indication: Atrial fibrillation
     Dosage: UNIT DOSE: 2.5 MG, FREQUENCY TIME : 12 HOURS
  5. LANSOPRAZOLE [Concomitant]
     Active Substance: LANSOPRAZOLE
     Indication: Chronic gastritis
     Dosage: 30 MILLIGRAM DAILY; LANSOPRAZOLE 30 MG 1 CP DAY, UNIT DOSE : 30 MG , FREQUENCY : 1 IN 24 HOURS
  6. SYMBICORT [Concomitant]
     Active Substance: BUDESONIDE\FORMOTEROL FUMARATE DIHYDRATE
     Indication: Chronic obstructive pulmonary disease
     Dosage: SYMBICORT 160+4.5 MCG 2 PUFFS X 2 DIES
  7. ACETAMINOPHEN [Concomitant]
     Active Substance: ACETAMINOPHEN
     Indication: Product used for unknown indication
     Dosage: PARACETAMOL 1000 MG AB (NEVER ADMINISTERED IN OUR DEPARTMENT)
  8. LANOXIN [Concomitant]
     Active Substance: DIGOXIN
     Indication: Atrial fibrillation
     Dosage: .06 MILLIGRAM DAILY; LANOXIN 0.0625 MG 1 CP DAY, UNIT DOSE : 0.06 MG , FREQUENCY : 1 IN 24 HOURS
  9. LASIX [Concomitant]
     Active Substance: FUROSEMIDE
     Indication: Hypertensive heart disease
     Dosage: 25 MILLIGRAM DAILY; LASIX 25MG 1 CP DAY, UNIT DOSE : 25 MG, FREQUENCY : 1 IN 24 HOURS
  10. PURSENNID [Concomitant]
     Indication: Product used for unknown indication
     Dosage: FREQUENCY TIME : 24 HOURS

REACTIONS (3)
  - Hepatitis [Recovering/Resolving]
  - Haematoma [Recovering/Resolving]
  - Coagulation time prolonged [Recovering/Resolving]

NARRATIVE: CASE EVENT DATE: 20230117
